FAERS Safety Report 9354081 (Version 3)
Quarter: 2013Q3

REPORT INFORMATION
  Report Type: Spontaneous
  Country: FR (occurrence: FR)
  Receive Date: 20130618
  Receipt Date: 20130912
  Transmission Date: 20140515
  Serious: Yes (Death, Life-Threatening, Other)
  Sender: FDA-Public Use
  Company Number: FR-TEVA-412971ISR

PATIENT
  Age: 74 Year
  Sex: Female

DRUGS (4)
  1. FUROSEMIDE TEVA [Suspect]
     Indication: ACUTE PULMONARY OEDEMA
     Dosage: 3 TABLETS WERE TAKEN
     Dates: start: 201304
  2. DIFFU K [Concomitant]
     Dosage: 2 DOSAGE FORMS DAILY;
     Route: 048
     Dates: start: 201207, end: 201304
  3. LASILIX [Concomitant]
  4. VISKEN 15 MG [Concomitant]
     Dosage: 1 DOSAGE FORMS DAILY;
     Route: 048
     Dates: start: 201207, end: 201304

REACTIONS (4)
  - Acute pulmonary oedema [Fatal]
  - General physical health deterioration [Unknown]
  - Decreased appetite [Unknown]
  - Dyspnoea [Unknown]
